FAERS Safety Report 22848328 (Version 2)
Quarter: 2024Q1

REPORT INFORMATION
  Report Type: Spontaneous
  Country: ES (occurrence: ES)
  Receive Date: 20230822
  Receipt Date: 20240325
  Transmission Date: 20240409
  Serious: Yes (Other)
  Sender: FDA-Public Use
  Company Number: ES-ABBVIE-5373678

PATIENT
  Age: 8 Year
  Sex: Male

DRUGS (1)
  1. DEXAMETHASONE [Suspect]
     Active Substance: DEXAMETHASONE
     Indication: Exudative retinopathy
     Dosage: TIME INTERVAL: AS NECESSARY: 3 IMPLANTS WAS ADMINISTERED FOLLOWED BY LASER PHOTOCOAGULATION,
     Route: 031

REACTIONS (3)
  - Cataract [Unknown]
  - Intraocular pressure increased [Recovering/Resolving]
  - Off label use [Unknown]
